FAERS Safety Report 6066377-9 (Version None)
Quarter: 2009Q1

REPORT INFORMATION
  Report Type: 
  Country: None (occurrence: None)
  Receive Date: 20090205
  Receipt Date: 20090124
  Transmission Date: 20090719
  Serious: Yes (Hospitalization, Other)
  Sender: FDA-Public Use
  Company Number: US-PFIZER INC-2008159357

PATIENT
  Sex: Female

DRUGS (5)
  1. CHANTIX [Suspect]
     Indication: SMOKING CESSATION THERAPY
     Dosage: UNK
  2. SEROQUEL [Concomitant]
     Dosage: UNK
  3. VALIUM [Concomitant]
  4. HYDROCODONE [Concomitant]
     Dosage: UNK
  5. ALL OTHER THERAPEUTIC PRODUCTS [Concomitant]
     Dosage: UNK

REACTIONS (14)
  - ABNORMAL BEHAVIOUR [None]
  - ANXIETY [None]
  - BIPOLAR DISORDER [None]
  - DELUSION [None]
  - DEPRESSION [None]
  - DRUG SCREEN POSITIVE [None]
  - HALLUCINATION [None]
  - HOMICIDAL IDEATION [None]
  - NIGHTMARE [None]
  - PARANOIA [None]
  - STRESS [None]
  - THINKING ABNORMAL [None]
  - TREMOR [None]
  - WEIGHT DECREASED [None]
